FAERS Safety Report 6946635-3 (Version None)
Quarter: 2010Q3

REPORT INFORMATION
  Report Type: 
  Country: None (occurrence: None)
  Receive Date: 20100825
  Receipt Date: 20100810
  Transmission Date: 20110219
  Serious: Yes (Hospitalization)
  Sender: FDA-Public Use
  Company Number: 1000015829

PATIENT
  Age: 40 Year
  Sex: Female

DRUGS (5)
  1. CITALOPRAM (CITALOPRAM HYDROBROMIDE) [Suspect]
     Dosage: ORAL
     Route: 048
  2. ASPIRIN [Suspect]
     Dosage: ORAL
     Route: 048
  3. LAMOTRIGINE [Suspect]
     Dosage: ORAL
     Route: 048
  4. DALTEPARIN (INJECTION) [Suspect]
     Dosage: 212, 500 UNITS, SUBCUTANEOUS
     Route: 058
  5. PROMETHAZINE [Suspect]
     Dosage: ORAL
     Route: 048

REACTIONS (5)
  - ACTIVATED PARTIAL THROMBOPLASTIN TIME PROLONGED [None]
  - INJECTION SITE HAEMORRHAGE [None]
  - POISONING DELIBERATE [None]
  - SOMNOLENCE [None]
  - SUICIDE ATTEMPT [None]
